FAERS Safety Report 11768865 (Version 1)
Quarter: 2015Q4

REPORT INFORMATION
  Report Type: Spontaneous
  Country: US (occurrence: US)
  Receive Date: 20151123
  Receipt Date: 20151123
  Transmission Date: 20160304
  Serious: Yes (Other)
  Sender: FDA-Public Use
  Company Number: US-PFIZER INC-2015396209

PATIENT
  Sex: Male

DRUGS (2)
  1. TIKOSYN [Suspect]
     Active Substance: DOFETILIDE
     Indication: ATRIAL FIBRILLATION
     Dosage: 2 DF, DAILY
  2. TIKOSYN [Suspect]
     Active Substance: DOFETILIDE
     Dosage: 1 DF, DAILY

REACTIONS (2)
  - Intentional product use issue [Unknown]
  - Atrial fibrillation [Unknown]
